FAERS Safety Report 16536797 (Version 6)
Quarter: 2019Q4

REPORT INFORMATION
  Report Type: Spontaneous
  Country: JP (occurrence: JP)
  Receive Date: 20190706
  Receipt Date: 20191223
  Transmission Date: 20200122
  Serious: Yes (Death, Hospitalization, Other)
  Sender: FDA-Public Use
  Company Number: JP-009507513-1902JPN002988J

PATIENT
  Age: 74 Year
  Sex: Male
  Weight: 52 kg

DRUGS (7)
  1. ROSUVASTATIN. [Concomitant]
     Active Substance: ROSUVASTATIN
     Dosage: 2.5 MILLIGRAM, QD
     Route: 048
     Dates: end: 20190627
  2. DAIPHEN [Concomitant]
     Active Substance: SULFAMETHOXAZOLE\TRIMETHOPRIM
     Indication: INFECTION
     Dosage: 1 DOSAGE FORM, QOD
     Route: 048
     Dates: start: 20190227, end: 20190627
  3. REBAMIPIDE [Concomitant]
     Active Substance: REBAMIPIDE
     Dosage: 100 MILLIGRAM, TID
     Route: 048
     Dates: end: 20190627
  4. MAGMITT [Concomitant]
     Active Substance: MAGNESIUM OXIDE
     Dosage: 250 MILLIGRAM, BID
     Route: 048
     Dates: start: 20181224, end: 20190627
  5. AMLODIPINE [Concomitant]
     Active Substance: AMLODIPINE BESYLATE
     Dosage: 5 MILLIGRAM, QD
     Route: 048
     Dates: end: 20190627
  6. KEYTRUDA [Suspect]
     Active Substance: PEMBROLIZUMAB
     Indication: NON-SMALL CELL LUNG CANCER
     Dosage: 200 MILLIGRAM, Q3W
     Route: 041
     Dates: start: 20190207, end: 20190508
  7. FAMOTIDINE. [Concomitant]
     Active Substance: FAMOTIDINE
     Dosage: 20 MILLIGRAM, QD
     Route: 048
     Dates: start: 20190227, end: 20190422

REACTIONS (4)
  - Liver disorder [Recovered/Resolved]
  - Hepatic encephalopathy [Unknown]
  - Hepatic failure [Fatal]
  - Presyncope [Recovered/Resolved]

NARRATIVE: CASE EVENT DATE: 20190227
